FAERS Safety Report 5745546-9 (Version None)
Quarter: 2008Q2

REPORT INFORMATION
  Report Type: 
  Country: None (occurrence: None)
  Receive Date: 20080521
  Receipt Date: 20080514
  Transmission Date: 20081010
  Serious: Yes (Hospitalization, Other)
  Sender: FDA-Public Use
  Company Number: JP-PFIZER INC-2008041901

PATIENT
  Age: 83 Year
  Sex: Male

DRUGS (3)
  1. DETRUSITOL SR [Suspect]
     Indication: PROSTATE CANCER
     Route: 048
  2. CASODEX [Suspect]
  3. ZOLADEX [Suspect]

REACTIONS (3)
  - ANAEMIA [None]
  - LYMPHOCYTE STIMULATION TEST POSITIVE [None]
  - PULMONARY ALVEOLAR HAEMORRHAGE [None]
